FAERS Safety Report 7584943-6 (Version None)
Quarter: 2011Q2

REPORT INFORMATION
  Report Type: 
  Country: None (occurrence: None)
  Receive Date: 20110630
  Receipt Date: 20110617
  Transmission Date: 20111010
  Serious: Yes (Hospitalization)
  Sender: FDA-Public Use
  Company Number: US-BAYER-2011-053050

PATIENT
  Sex: Female

DRUGS (2)
  1. AVELOX [Suspect]
     Indication: PRODUCT USED FOR UNKNOWN INDICATION
     Dosage: UNK, BID
     Route: 048
     Dates: end: 20110616
  2. ORAL CONTRACEPTIVE NOS [Concomitant]

REACTIONS (3)
  - PARAESTHESIA [None]
  - MUSCLE TWITCHING [None]
  - HYPOAESTHESIA [None]
